FAERS Safety Report 4345851-7 (Version None)
Quarter: 2004Q2

REPORT INFORMATION
  Report Type: 
  Country: None (occurrence: None)
  Receive Date: 20040423
  Receipt Date: 20040423
  Transmission Date: 20050107
  Serious: Yes (Hospitalization)
  Sender: FDA-Public Use
  Company Number: None

PATIENT
  Age: 66 Year
  Sex: Male

DRUGS (1)
  1. PROPYL-THIOURACIL [Suspect]
     Indication: HYPERTHYROIDISM
     Dosage: 300 MG TID ORAL
     Route: 048
     Dates: start: 20031210, end: 20040210

REACTIONS (4)
  - CHILLS [None]
  - PYREXIA [None]
  - RASH [None]
  - RENAL FAILURE [None]
